FAERS Safety Report 14844359 (Version 2)
Quarter: 2018Q4

REPORT INFORMATION
  Report Type: Report from Study
  Country: PL (occurrence: PL)
  Receive Date: 20180503
  Receipt Date: 20181116
  Transmission Date: 20190204
  Serious: Yes (Hospitalization, Disabling)
  Sender: FDA-Public Use
  Company Number: PL-EXELIXIS-XL18418012536

PATIENT
  Age: 64 Year
  Sex: Male
  Weight: 73 kg

DRUGS (15)
  1. ZIRID [Concomitant]
  2. EUTHYROX [Concomitant]
     Active Substance: LEVOTHYROXINE SODIUM
  3. BLINDED XL184 [Suspect]
     Active Substance: CABOZANTINIB
     Indication: MEDULLARY THYROID CANCER
     Dosage: UNK
     Dates: start: 20160906
  4. AGEN [Concomitant]
     Active Substance: AMLODIPINE BESYLATE
  5. KALIPOZ PROLONGATE [Concomitant]
     Active Substance: POTASSIUM CHLORIDE
  6. KREON [Concomitant]
     Active Substance: PANCRELIPASE
  7. VIGANTOLETTEN [Concomitant]
     Active Substance: CHOLECALCIFEROL
  8. BLINDED XL184 [Suspect]
     Active Substance: CABOZANTINIB
     Indication: MEDULLARY THYROID CANCER
     Dosage: UNK
     Dates: start: 20160906
  9. TRITACE [Concomitant]
     Active Substance: RAMIPRIL
  10. PROSTATIC [Concomitant]
  11. AXTIL [Concomitant]
  12. PROURSAN [Concomitant]
     Active Substance: URSODIOL
  13. MATRIFEN [Concomitant]
     Active Substance: FENTANYL
  14. IPP [Concomitant]
     Active Substance: PANTOPRAZOLE SODIUM
  15. ESPIRO [Concomitant]

REACTIONS (1)
  - Oesophageal candidiasis [Recovered/Resolved]

NARRATIVE: CASE EVENT DATE: 20180210
